FAERS Safety Report 6386317-2 (Version None)
Quarter: 2009Q4

REPORT INFORMATION
  Report Type: 
  Country: None (occurrence: None)
  Receive Date: 20091002
  Receipt Date: 20090923
  Transmission Date: 20100525
  Serious: Yes (Hospitalization, Other)
  Sender: FDA-Public Use
  Company Number: PHHY2008MX28274

PATIENT
  Sex: Female

DRUGS (3)
  1. DIOVAN HCT [Suspect]
     Indication: HYPERTENSION
     Dosage: 1 DF/DAY
     Route: 048
     Dates: start: 20050501
  2. INSOGEN PLUS [Concomitant]
     Indication: DIABETES MELLITUS
     Dosage: 1 TABLET DAILY
  3. OMEPRAZOLE [Concomitant]
     Indication: GASTRITIS
     Dosage: 1 TABLET DAILY

REACTIONS (11)
  - BIOPSY [None]
  - BLADDER CANCER [None]
  - BLOOD PRESSURE INCREASED [None]
  - GALLBLADDER OPERATION [None]
  - HAEMORRHAGE URINARY TRACT [None]
  - HEART RATE INCREASED [None]
  - PAIN [None]
  - SURGERY [None]
  - TRANSITIONAL CELL CARCINOMA [None]
  - VAGINAL HAEMORRHAGE [None]
  - VOMITING [None]
